FAERS Safety Report 19092460 (Version 1)
Quarter: 2021Q2

REPORT INFORMATION
  Report Type: Spontaneous
  Country: US (occurrence: US)
  Receive Date: 20210403
  Receipt Date: 20210403
  Transmission Date: 20210717
  Serious: No
  Sender: FDA-Public Use
  Company Number: None

PATIENT
  Sex: Male

DRUGS (1)
  1. DURISAN HAND SANITIZER [Suspect]
     Active Substance: BENZALKONIUM CHLORIDE
     Dates: start: 20200314, end: 20210402

REACTIONS (2)
  - Malaise [None]
  - Rash [None]

NARRATIVE: CASE EVENT DATE: 20200402
